FAERS Safety Report 18807135 (Version 2)
Quarter: 2021Q1

REPORT INFORMATION
  Report Type: Spontaneous
  Country: US (occurrence: US)
  Receive Date: 20210128
  Receipt Date: 20210216
  Transmission Date: 20210419
  Serious: Yes (Hospitalization, Other)
  Sender: FDA-Public Use
  Company Number: US-GILEAD-2021-0515033

PATIENT
  Age: 57 Year
  Sex: Male
  Weight: 41.5 kg

DRUGS (14)
  1. MARINOL [ALLOPURINOL] [Concomitant]
     Active Substance: ALLOPURINOL
  2. MELATONIN [Concomitant]
     Active Substance: MELATONIN
  3. MYCOPHENOLATE [Concomitant]
     Active Substance: MYCOPHENOLIC ACID
  4. CYCLOSPORINE. [Concomitant]
     Active Substance: CYCLOSPORINE
  5. INSULINA [INSULIN] [Concomitant]
  6. ASPIRIN (E.C.) [Concomitant]
     Active Substance: ASPIRIN
  7. VEMLIDY [Suspect]
     Active Substance: TENOFOVIR ALAFENAMIDE FUMARATE
     Indication: CHRONIC HEPATITIS B
     Dosage: UNK
     Route: 065
  8. MAGNESIUM [Concomitant]
     Active Substance: MAGNESIUM
  9. TAMSULOSIN [Concomitant]
     Active Substance: TAMSULOSIN
  10. NOVOLOG [Concomitant]
     Active Substance: INSULIN ASPART
  11. PANTOPRAZOLE [Concomitant]
     Active Substance: PANTOPRAZOLE
  12. PREDNISONE. [Concomitant]
     Active Substance: PREDNISONE
  13. VALGANCICLOVIR. [Concomitant]
     Active Substance: VALGANCICLOVIR
  14. PENTOXIFYLLINE. [Concomitant]
     Active Substance: PENTOXIFYLLINE

REACTIONS (4)
  - Mental status changes [Recovered/Resolved]
  - Pneumonia [Unknown]
  - Liver transplant [Recovering/Resolving]
  - Hypercapnia [Recovered/Resolved]

NARRATIVE: CASE EVENT DATE: 2020
